FAERS Safety Report 20568971 (Version 1)
Quarter: 2022Q1

REPORT INFORMATION
  Report Type: Spontaneous
  Country: US (occurrence: None)
  Receive Date: 20220308
  Receipt Date: 20220308
  Transmission Date: 20220423
  Serious: No
  Sender: FDA-Public Use
  Company Number: US-ROCHE-2904896

PATIENT

DRUGS (1)
  1. PHESGO [Suspect]
     Active Substance: HYALURONIDASE-ZZXF\PERTUZUMAB\TRASTUZUMAB
     Indication: Product use in unapproved indication
     Dosage: UNKNOWN
     Route: 042

REACTIONS (2)
  - Pain in extremity [Unknown]
  - Off label use [Unknown]

NARRATIVE: CASE EVENT DATE: 20210901
